FAERS Safety Report 13655386 (Version 1)
Quarter: 2017Q2

REPORT INFORMATION
  Report Type: Spontaneous
  Country: US (occurrence: US)
  Receive Date: 20170615
  Receipt Date: 20170615
  Transmission Date: 20170830
  Serious: No
  Sender: FDA-Public Use
  Company Number: PHEH2017US018011

PATIENT
  Age: 39 Year
  Sex: Male

DRUGS (1)
  1. VOTRIENT [Suspect]
     Active Substance: PAZOPANIB HYDROCHLORIDE
     Indication: NEOPLASM MALIGNANT
     Dosage: 4 DF, QD
     Route: 048
     Dates: start: 20170116, end: 20170531

REACTIONS (4)
  - Hair colour changes [Unknown]
  - Scab [Unknown]
  - Blister [Unknown]
  - Pain [Unknown]

NARRATIVE: CASE EVENT DATE: 20170531
